FAERS Safety Report 8180132-5 (Version None)
Quarter: 2012Q1

REPORT INFORMATION
  Report Type: 
  Country: None (occurrence: None)
  Receive Date: 20120224
  Receipt Date: 20120215
  Transmission Date: 20120608
  Serious: Yes (Other)
  Sender: FDA-Public Use
  Company Number: AEDEU201200036

PATIENT
  Age: 45 Year
  Sex: Female
  Weight: 60 kg

DRUGS (11)
  1. CITALOPRAM HYDROBROMIDE [Concomitant]
  2. THEOPHYLLINE [Concomitant]
  3. FLUTICASONE PROPIONATE W/SALMETEROL [Concomitant]
  4. NASIC [Concomitant]
  5. FENOTEROL W/IPRATROPIUM BROMIDE [Concomitant]
  6. REACTINE DUO [Concomitant]
  7. PROLASTIN [Suspect]
     Indication: ALPHA-1 ANTI-TRYPSIN DEFICIENCY
     Dosage: 3.6 GM;QW;IV
     Route: 042
     Dates: start: 20120118
  8. SPIRIVA [Concomitant]
  9. OMEPRAZOLE [Concomitant]
  10. DIPYRONE TAB [Concomitant]
  11. ACETAMINOPHEN [Concomitant]

REACTIONS (3)
  - ANAPHYLACTIC SHOCK [None]
  - HEART RATE DECREASED [None]
  - PRODUCT QUALITY ISSUE [None]
